FAERS Safety Report 6954874-0 (Version None)
Quarter: 2010Q3

REPORT INFORMATION
  Report Type: 
  Country: None (occurrence: None)
  Receive Date: 20100830
  Receipt Date: 20100826
  Transmission Date: 20110219
  Serious: Yes (Death)
  Sender: FDA-Public Use
  Company Number: US-ASTRAZENECA-2009UW01206

PATIENT
  Age: 870 Month
  Sex: Female

DRUGS (7)
  1. SEROQUEL [Suspect]
     Indication: ANXIETY
     Route: 048
     Dates: start: 20031101, end: 20070101
  2. SEROQUEL [Suspect]
     Indication: DEPRESSION
     Route: 048
     Dates: start: 20031101, end: 20070101
  3. SEROQUEL [Suspect]
     Route: 048
     Dates: start: 20050824
  4. SEROQUEL [Suspect]
     Route: 048
     Dates: start: 20050824
  5. TOPROL-XL [Concomitant]
     Dates: start: 20050824
  6. ZOLOFT [Concomitant]
     Dates: start: 20050901
  7. FEMARA [Concomitant]
     Dates: start: 20050916

REACTIONS (3)
  - DIABETES MELLITUS [None]
  - MENINGIOMA MALIGNANT [None]
  - TYPE 2 DIABETES MELLITUS [None]
